FAERS Safety Report 4523100-4 (Version None)
Quarter: 2004Q4

REPORT INFORMATION
  Report Type: 
  Country: None (occurrence: None)
  Receive Date: 20041210
  Receipt Date: 20041201
  Transmission Date: 20050328
  Serious: Yes (Hospitalization, Other)
  Sender: FDA-Public Use
  Company Number: 200419228US

PATIENT
  Age: 65 Year
  Sex: Female

DRUGS (7)
  1. LOVENOX [Suspect]
     Indication: HYPERCOAGULATION
     Route: 058
     Dates: start: 20040701, end: 20041130
  2. LOVENOX [Suspect]
     Indication: LUNG ADENOCARCINOMA
     Route: 058
     Dates: start: 20040701, end: 20041130
  3. PREDNISONE [Concomitant]
     Dosage: DOSE: UNK
  4. HYDROCODONE [Concomitant]
     Dosage: DOSE: UNK
  5. UNKNOWN DRUG [Concomitant]
     Dosage: DOSE: UNK
  6. CARAFATE [Concomitant]
     Dosage: DOSE: UNK
  7. MULTIVITAMINS, PLAIN [Concomitant]
     Dosage: DOSE: UNK

REACTIONS (8)
  - ASTHENIA [None]
  - DIPLEGIA [None]
  - HAEMOGLOBIN DECREASED [None]
  - METASTASES TO STOMACH [None]
  - METASTASIS [None]
  - OEDEMA PERIPHERAL [None]
  - PLATELET COUNT INCREASED [None]
  - VENA CAVA THROMBOSIS [None]
